FAERS Safety Report 8981040 (Version 1)
Quarter: 2012Q4

REPORT INFORMATION
  Report Type: Report from Study
  Country: CA (occurrence: CA)
  Receive Date: 20121221
  Receipt Date: 20121221
  Transmission Date: 20130627
  Serious: Yes (Hospitalization, Other)
  Sender: FDA-Public Use
  Company Number: CA-ROCHE-1168159

PATIENT
  Sex: Female
  Weight: 83.9 kg

DRUGS (21)
  1. RITUXIMAB [Suspect]
     Indication: RHEUMATOID ARTHRITIS
     Route: 042
     Dates: start: 20110512
  2. ADVAIR [Concomitant]
     Route: 065
  3. DETROL [Concomitant]
     Route: 065
  4. PREDNISONE [Concomitant]
  5. SIMVASTATIN [Concomitant]
  6. RITALIN [Concomitant]
  7. AMLODIPINE [Concomitant]
  8. ZENHALE [Concomitant]
  9. TECTA [Concomitant]
  10. CYMBALTA [Concomitant]
  11. ZOPICLONE [Concomitant]
  12. PROLIA [Concomitant]
     Route: 065
  13. SINGULAIR [Concomitant]
  14. VITAMIN D [Concomitant]
  15. FOLIC ACID [Concomitant]
  16. GAVISCON (ALGINIC ACID) [Concomitant]
     Route: 065
  17. OMEGA 3-6-9 [Concomitant]
  18. VITAMIN B COMPLEX [Concomitant]
  19. DIPHENHYDRAMINE HCL [Concomitant]
     Indication: PREMEDICATION
     Route: 048
     Dates: start: 20110512
  20. ACETAMINOPHEN [Concomitant]
     Indication: PREMEDICATION
     Route: 048
     Dates: start: 20110512
  21. METHYLPREDNISOLONE [Concomitant]
     Indication: PREMEDICATION
     Route: 042
     Dates: start: 20110512

REACTIONS (2)
  - Retinal detachment [Recovered/Resolved]
  - Sjogren^s syndrome [Not Recovered/Not Resolved]
